FAERS Safety Report 7070226-X (Version None)
Quarter: 2010Q4

REPORT INFORMATION
  Report Type: 
  Country: None (occurrence: None)
  Receive Date: 20101028
  Receipt Date: 20100923
  Transmission Date: 20110411
  Serious: No
  Sender: FDA-Public Use
  Company Number: US-WYE-H17765810

PATIENT
  Age: 77 Year
  Sex: Male
  Weight: 70.37 kg

DRUGS (7)
  1. ADVIL [Suspect]
     Indication: MUSCLE SPASMS
     Dosage: ONE LIQUI-GEL DAILY
     Route: 048
     Dates: start: 20100909
  2. COMBIVENT [Concomitant]
  3. PANTOPRAZOLE [Concomitant]
  4. XALATAN [Concomitant]
  5. IBUPROFEN/DIPHENHYDRAMINE CITRATE [Suspect]
     Indication: MUSCLE SPASMS
     Dosage: TWO CAPLETS AT NIGHT
     Route: 048
     Dates: start: 20100909
  6. BENICAR [Concomitant]
  7. SPIRONOLACTONE [Concomitant]

REACTIONS (2)
  - CONTUSION [None]
  - DIARRHOEA [None]
